FAERS Safety Report 4421872-0 (Version None)
Quarter: 2004Q3

REPORT INFORMATION
  Report Type: 
  Country: None (occurrence: None)
  Receive Date: 20040804
  Receipt Date: 20040722
  Transmission Date: 20050211
  Serious: Yes (Hospitalization)
  Sender: FDA-Public Use
  Company Number: US-JNJFOC-20040608373

PATIENT
  Age: 75 Year
  Sex: Female

DRUGS (21)
  1. INFLIXIMAB (INFLIXIMAB, RECOMBINANT) LYOPHILIZED POWDER [Suspect]
     Indication: RHEUMATOID ARTHRITIS
     Dosage: 3 MG/KG, 1 IN 8 WEEK, INTRAVENOUS; 3 MG/KG, 1 IN 8 WEEK, INTRAVENOUS
     Route: 042
     Dates: start: 20010529
  2. INFLIXIMAB (INFLIXIMAB, RECOMBINANT) LYOPHILIZED POWDER [Suspect]
     Indication: RHEUMATOID ARTHRITIS
     Dosage: 3 MG/KG, 1 IN 8 WEEK, INTRAVENOUS; 3 MG/KG, 1 IN 8 WEEK, INTRAVENOUS
     Route: 042
     Dates: start: 20040316
  3. FOLIC ACID (FOLIC ACID) CAPSULES [Concomitant]
  4. ACTONEL (RISEDRONATE SODIUM) TABLETS [Concomitant]
  5. ULTRACET [Concomitant]
  6. BEXTRA (BUCINDOLOL HYDROCHLORIDE) TABLETS [Concomitant]
  7. NEURONTIN [Concomitant]
  8. CALCIUM CARBONATE/VITAMIN D (CALCIUM CARBONATE) [Concomitant]
  9. PLAQUENIL (HYDROXYCHLOROQUINE PHOSPHATE) TABLETS [Concomitant]
  10. ATENOLOL [Concomitant]
  11. ASPIRIN [Concomitant]
  12. VITAMIN E (TOCOPHEROL) CAPSULES [Concomitant]
  13. MULTIVITAMINS (MULTIVITAMINS) TABLETS [Concomitant]
  14. METHOTREXATE SODIUM (METHOTREXATE SODIUM) TABLETS [Concomitant]
  15. ALDOMET [Concomitant]
  16. FORTEO [Concomitant]
  17. PROTONIX [Concomitant]
  18. ULTRAM [Concomitant]
  19. TYLENOL [Concomitant]
  20. MILK OF MAGNESIA (MAGNESIUM HYDROXIDE) [Concomitant]
  21. DESYREL [Concomitant]

REACTIONS (23)
  - ASTHENIA [None]
  - BLOOD CHLORIDE DECREASED [None]
  - BLOOD GLUCOSE INCREASED [None]
  - BLOOD POTASSIUM DECREASED [None]
  - BLOOD SODIUM DECREASED [None]
  - BOWEL SOUNDS ABNORMAL [None]
  - CONSTIPATION [None]
  - DEHYDRATION [None]
  - ELECTROCARDIOGRAM QT PROLONGED [None]
  - HAEMATOCRIT DECREASED [None]
  - HAEMOGLOBIN DECREASED [None]
  - LOSS OF CONSCIOUSNESS [None]
  - MENTAL STATUS CHANGES [None]
  - OESOPHAGEAL CANDIDIASIS [None]
  - OSTEOPOROSIS [None]
  - PANCREATITIS [None]
  - PHARYNGOLARYNGEAL PAIN [None]
  - PLATELET COUNT DECREASED [None]
  - RESPIRATORY RATE INCREASED [None]
  - TENDERNESS [None]
  - URINE ABNORMALITY [None]
  - VENTRICULAR EXTRASYSTOLES [None]
  - WHITE BLOOD CELLS URINE POSITIVE [None]
